FAERS Safety Report 12708671 (Version 1)
Quarter: 2016Q3

REPORT INFORMATION
  Report Type: Report from Study
  Country: US (occurrence: US)
  Receive Date: 20160901
  Receipt Date: 20160901
  Transmission Date: 20161109
  Serious: Yes (Hospitalization)
  Sender: FDA-Public Use
  Company Number: US-VALIDUS PHARMACEUTICALS LLC-US-2016VAL002489

PATIENT

DRUGS (15)
  1. PROGRAF [Concomitant]
     Active Substance: TACROLIMUS\TACROLIMUS ANHYDROUS
     Indication: RENAL TRANSPLANT
     Dosage: 4 MG, QD
     Dates: start: 20150620
  2. VALCYTE [Concomitant]
     Active Substance: VALGANCICLOVIR HYDROCHLORIDE
     Indication: RENAL TRANSPLANT
     Dosage: 225 MG, QD
     Route: 048
     Dates: start: 20150620
  3. MIDODRINE [Concomitant]
     Active Substance: MIDODRINE
     Indication: RENAL TRANSPLANT
     Dosage: 20 MG, QD
     Route: 048
     Dates: start: 20150620
  4. ALLOPURINOL. [Concomitant]
     Active Substance: ALLOPURINOL
     Indication: NEPHROPATHY
     Dosage: 100 MG, QD
     Route: 048
  5. DIGOXIN. [Concomitant]
     Active Substance: DIGOXIN
     Indication: NEPHROPATHY
     Dosage: 0.125 MG, QD
     Route: 048
     Dates: start: 20121030
  6. FUROSEMIDE. [Suspect]
     Active Substance: FUROSEMIDE
     Indication: PULMONARY ARTERIAL HYPERTENSION
     Dosage: 20 MG, TOTAL DAILY DOSE
     Route: 048
     Dates: start: 20150819, end: 20151104
  7. FLOMAX [Concomitant]
     Active Substance: TAMSULOSIN HYDROCHLORIDE
     Indication: BENIGN PROSTATIC HYPERPLASIA
     Dosage: 0.4 MG, QD
     Dates: start: 20150620
  8. SIMVASTATIN. [Concomitant]
     Active Substance: SIMVASTATIN
     Indication: NEPHROPATHY
     Dosage: 20 MG, QD
     Route: 048
     Dates: start: 20130715
  9. BOSENTAN. [Concomitant]
     Active Substance: BOSENTAN
     Indication: PULMONARY ARTERIAL HYPERTENSION
     Dosage: 250 MG, QD
     Dates: start: 20120726
  10. WARFARIN [Concomitant]
     Active Substance: WARFARIN
     Indication: ATRIAL FIBRILLATION
     Dosage: 5 MG, QD
     Route: 048
  11. TREPROSTINIL [Suspect]
     Active Substance: TREPROSTINIL
     Dosage: UNK
     Route: 048
     Dates: start: 20150914
  12. MYFORTIC [Concomitant]
     Active Substance: MYCOPHENOLATE SODIUM
     Indication: RENAL TRANSPLANT
     Dosage: 1440 MG, QD
     Route: 048
     Dates: start: 20150620
  13. TREPROSTINIL [Suspect]
     Active Substance: TREPROSTINIL
     Indication: PULMONARY ARTERIAL HYPERTENSION
     Dosage: 2.75 MG, TID
     Route: 048
     Dates: start: 20151103
  14. BACTRIM DS [Concomitant]
     Active Substance: SULFAMETHOXAZOLE\TRIMETHOPRIM
     Indication: RENAL TRANSPLANT
     Dosage: 800-160 MG TOTAL DAILY DOSE
     Route: 048
     Dates: start: 20150620
  15. PROTONIX [Concomitant]
     Active Substance: PANTOPRAZOLE SODIUM
     Indication: GASTROOESOPHAGEAL REFLUX DISEASE
     Dosage: 40 MG, QD
     Route: 048
     Dates: start: 20150620

REACTIONS (2)
  - Blood creatinine increased [Recovered/Resolved]
  - Diarrhoea [Recovered/Resolved with Sequelae]

NARRATIVE: CASE EVENT DATE: 20151001
